FAERS Safety Report 23257128 (Version 1)
Quarter: 2023Q4

REPORT INFORMATION
  Report Type: Report from Study
  Country: CA (occurrence: CA)
  Receive Date: 20231204
  Receipt Date: 20231204
  Transmission Date: 20240110
  Serious: No
  Sender: FDA-Public Use
  Company Number: CA-ABBVIE-5185470

PATIENT
  Age: 52 Year
  Sex: Male
  Weight: 81 kg

DRUGS (5)
  1. UPADACITINIB [Suspect]
     Active Substance: UPADACITINIB
     Indication: Axial spondyloarthritis
     Route: 048
     Dates: start: 20221115, end: 20221220
  2. UPADACITINIB [Suspect]
     Active Substance: UPADACITINIB
     Indication: Axial spondyloarthritis
     Route: 048
     Dates: start: 20221226
  3. PREDNISONE [Concomitant]
     Active Substance: PREDNISONE
     Indication: Axial spondyloarthritis
     Route: 048
     Dates: start: 20221022, end: 20230204
  4. PREDNISONE [Concomitant]
     Active Substance: PREDNISONE
     Indication: Axial spondyloarthritis
     Route: 048
     Dates: start: 20230205, end: 20230829
  5. PREDNISONE [Concomitant]
     Active Substance: PREDNISONE
     Indication: Axial spondyloarthritis
     Route: 048
     Dates: start: 20230830

REACTIONS (1)
  - Vitreous floaters [Recovered/Resolved with Sequelae]

NARRATIVE: CASE EVENT DATE: 20230401
